FAERS Safety Report 13119208 (Version 1)
Quarter: 2017Q1

REPORT INFORMATION
  Report Type: Report from Study
  Country: AR (occurrence: AR)
  Receive Date: 20170116
  Receipt Date: 20170116
  Transmission Date: 20170428
  Serious: Yes (Hospitalization)
  Sender: FDA-Public Use
  Company Number: PHHY2017AR005621

PATIENT
  Age: 66 Year
  Sex: Female

DRUGS (1)
  1. EXFORGE [Suspect]
     Active Substance: AMLODIPINE BESYLATE\VALSARTAN
     Indication: HYPERTENSION
     Dosage: 0.5 DF, QD (AMLODIPINE 10, VALSARTAN 160) (UNITS NOT REPORTED)
     Route: 065

REACTIONS (5)
  - Seizure [Recovering/Resolving]
  - Blood pressure decreased [Recovering/Resolving]
  - Wrong technique in product usage process [Unknown]
  - Blood sodium decreased [Recovering/Resolving]
  - Memory impairment [Recovering/Resolving]

NARRATIVE: CASE EVENT DATE: 201607
